FAERS Safety Report 6894758-X (Version None)
Quarter: 2010Q3

REPORT INFORMATION
  Report Type: 
  Country: None (occurrence: None)
  Receive Date: 20100802
  Receipt Date: 20100723
  Transmission Date: 20110219
  Serious: Yes (Life-Threatening, Hospitalization, Other)
  Sender: FDA-Public Use
  Company Number: BE-AMGEN-QUU422268

PATIENT
  Sex: Male
  Weight: 81 kg

DRUGS (1)
  1. VECTIBIX [Suspect]
     Indication: COLORECTAL CANCER
     Route: 042
     Dates: start: 20100107, end: 20100609

REACTIONS (7)
  - DECREASED APPETITE [None]
  - HYPOCALCAEMIA [None]
  - HYPOMAGNESAEMIA [None]
  - MALAISE [None]
  - METASTASES TO LIVER [None]
  - NAUSEA [None]
  - PYREXIA [None]
